FAERS Safety Report 5713815-4 (Version None)
Quarter: 2008Q2

REPORT INFORMATION
  Report Type: 
  Country: None (occurrence: None)
  Receive Date: 20080421
  Receipt Date: 20080411
  Transmission Date: 20081010
  Serious: Yes (Hospitalization)
  Sender: FDA-Public Use
  Company Number: FABR-1000160

PATIENT
  Age: 42 Year
  Sex: Male

DRUGS (2)
  1. FABRAZYME (AGAISIDASE BETA) POWDER FOR SOLUTION FOR INFUSION [Suspect]
     Indication: FABRY'S DISEASE
     Dosage: 1 MG/KG, Q2W, INTRAVENOUS
     Route: 042
     Dates: start: 20060301
  2. UNKNOWN MEDICATION () [Suspect]

REACTIONS (9)
  - COMPARTMENT SYNDROME [None]
  - FLUSHING [None]
  - HAEMATOMA [None]
  - INFUSION RELATED REACTION [None]
  - PROTHROMBIN TIME ABNORMAL [None]
  - PRURITUS [None]
  - RASH ERYTHEMATOUS [None]
  - SKIN GRAFT [None]
  - WOUND [None]
